FAERS Safety Report 7512258-0 (Version None)
Quarter: 2011Q2

REPORT INFORMATION
  Report Type: 
  Country: None (occurrence: None)
  Receive Date: 20110525
  Receipt Date: 20110525
  Transmission Date: 20111010
  Serious: No
  Sender: FDA-Public Use
  Company Number: None

PATIENT
  Age: 51 Year
  Sex: Female
  Weight: 113.6 kg

DRUGS (1)
  1. STERLARA [Suspect]
     Indication: PSORIASIS
     Dosage: 90 MG ONCE SC
     Route: 058
     Dates: start: 20110408

REACTIONS (1)
  - DYSAESTHESIA [None]
